FAERS Safety Report 10085323 (Version 3)
Quarter: 2014Q3

REPORT INFORMATION
  Report Type: Report from Study
  Country: DE (occurrence: DE)
  Receive Date: 20140417
  Receipt Date: 20140702
  Transmission Date: 20150326
  Serious: Yes (Hospitalization)
  Sender: FDA-Public Use
  Company Number: DE-US-EMD SERONO, INC.-7282620

PATIENT
  Age: 47 Year
  Sex: Male

DRUGS (1)
  1. REBIF [Suspect]
     Active Substance: INTERFERON BETA-1A
     Indication: MULTIPLE SCLEROSIS
     Route: 058
     Dates: start: 200801, end: 20140214

REACTIONS (3)
  - Cellulitis [Recovered/Resolved]
  - Skin induration [Unknown]
  - Fat necrosis [Recovered/Resolved]

NARRATIVE: CASE EVENT DATE: 20130716
